FAERS Safety Report 11872363 (Version 1)
Quarter: 2015Q4

REPORT INFORMATION
  Report Type: Spontaneous
  Country: US (occurrence: US)
  Receive Date: 20151228
  Receipt Date: 20151228
  Transmission Date: 20160305
  Serious: Yes (Hospitalization, Other)
  Sender: FDA-Public Use
  Company Number: US-BAYER-2015-493234

PATIENT
  Age: 53 Year
  Sex: Female
  Weight: 87.98 kg

DRUGS (5)
  1. YASMIN [Suspect]
     Active Substance: DROSPIRENONE\ETHINYL ESTRADIOL
  2. ZOCOR [Concomitant]
     Active Substance: SIMVASTATIN
  3. YAZ [Suspect]
     Active Substance: DROSPIRENONE\ETHINYL ESTRADIOL
  4. SIMVASTATIN. [Concomitant]
     Active Substance: SIMVASTATIN
  5. ECOTRIN [Concomitant]
     Active Substance: ASPIRIN

REACTIONS (2)
  - Cerebrovascular accident [None]
  - Embolism arterial [None]

NARRATIVE: CASE EVENT DATE: 20100710
